FAERS Safety Report 16874304 (Version 1)
Quarter: 2019Q4

REPORT INFORMATION
  Report Type: Spontaneous
  Country: US (occurrence: US)
  Receive Date: 20191001
  Receipt Date: 20191001
  Transmission Date: 20200122
  Serious: No
  Sender: FDA-Public Use
  Company Number: US-BAUSCH-BL-2019-025588

PATIENT
  Sex: Female

DRUGS (1)
  1. DUOBRII [Suspect]
     Active Substance: HALOBETASOL PROPIONATE\TAZAROTENE
     Indication: PRODUCT USED FOR UNKNOWN INDICATION
     Dosage: AROUND 01/AUG/2019
     Route: 061
     Dates: start: 2019, end: 2019

REACTIONS (5)
  - Application site irritation [Recovering/Resolving]
  - Application site erythema [Recovering/Resolving]
  - Application site rash [Recovering/Resolving]
  - Application site pain [Recovering/Resolving]
  - Skin exfoliation [Recovering/Resolving]

NARRATIVE: CASE EVENT DATE: 2019
